FAERS Safety Report 20596648 (Version 3)
Quarter: 2022Q2

REPORT INFORMATION
  Report Type: Spontaneous
  Country: FR (occurrence: FR)
  Receive Date: 20220315
  Receipt Date: 20220413
  Transmission Date: 20220720
  Serious: Yes (Hospitalization)
  Sender: FDA-Public Use
  Company Number: FR-CELGENE-FRA-20220101178

PATIENT
  Age: 78 Year
  Sex: Male
  Weight: 79 kg

DRUGS (28)
  1. AZACITIDINE [Suspect]
     Active Substance: AZACITIDINE
     Indication: Myelodysplastic syndrome
     Dosage: 700 MILLIGRAM, Q21D
     Route: 058
     Dates: start: 20211018, end: 20211222
  2. AZACITIDINE [Suspect]
     Active Substance: AZACITIDINE
     Dosage: 350 MILLIGRAM, 28D CYCLE
     Route: 058
     Dates: start: 20211018, end: 20211222
  3. VENETOCLAX [Suspect]
     Active Substance: VENETOCLAX
     Indication: Myelodysplastic syndrome
     Dosage: 1 DOSAGE FORM, QD
     Route: 048
     Dates: start: 20211018, end: 20211227
  4. DIPROSONE [Concomitant]
     Active Substance: BETAMETHASONE DIPROPIONATE
     Indication: Skin lesion
     Dosage: 2 DOSAGE FORM, QD
     Route: 048
     Dates: start: 20211022, end: 20211228
  5. DIPROSONE [Concomitant]
     Active Substance: BETAMETHASONE DIPROPIONATE
     Route: 048
     Dates: start: 20211022, end: 20211228
  6. PRIMPERAN [Concomitant]
     Active Substance: METOCLOPRAMIDE HYDROCHLORIDE
     Indication: Nausea
     Dosage: 30 MILLIGRAM, QD
     Route: 048
     Dates: start: 20211018
  7. PRIMPERAN [Concomitant]
     Active Substance: METOCLOPRAMIDE HYDROCHLORIDE
     Dosage: 30 MILLIGRAM
     Route: 048
     Dates: start: 20211018, end: 20211019
  8. PIPERACILLIN SODIUM\TAZOBACTAM SODIUM [Concomitant]
     Active Substance: PIPERACILLIN SODIUM\TAZOBACTAM SODIUM
     Indication: Product used for unknown indication
     Dosage: UNK
     Route: 065
  9. PIPERACILLIN SODIUM\TAZOBACTAM SODIUM [Concomitant]
     Active Substance: PIPERACILLIN SODIUM\TAZOBACTAM SODIUM
     Route: 065
  10. PYGEUM [Concomitant]
     Active Substance: PYGEUM
     Indication: Benign prostatic hyperplasia
     Dosage: 50 MILLIGRAM
     Route: 048
  11. CRESEMBA [Concomitant]
     Active Substance: ISAVUCONAZONIUM SULFATE
     Indication: Antifungal prophylaxis
     Dosage: 1800 MILLIGRAM, QD
     Route: 048
     Dates: start: 20211214, end: 20211216
  12. CRESEMBA [Concomitant]
     Active Substance: ISAVUCONAZONIUM SULFATE
     Dosage: 200 MILLIGRAM
     Route: 048
     Dates: start: 20211216
  13. CRESEMBA [Concomitant]
     Active Substance: ISAVUCONAZONIUM SULFATE
     Dosage: 200 MILLIGRAM, QD
     Route: 048
     Dates: start: 20220117, end: 20220117
  14. ZOFRAN [Concomitant]
     Active Substance: ONDANSETRON HYDROCHLORIDE
     Indication: Nausea
     Dosage: 36 MILLIGRAM
     Route: 048
     Dates: start: 20211018
  15. CILASTATIN [Concomitant]
     Active Substance: CILASTATIN
     Indication: Product used for unknown indication
     Dosage: UNK
     Route: 065
  16. SPIRAMYCIN [Concomitant]
     Active Substance: SPIRAMYCIN
     Indication: Product used for unknown indication
     Dosage: UNK
     Route: 065
  17. SPIRAMYCIN [Concomitant]
     Active Substance: SPIRAMYCIN
     Route: 065
  18. PLATELETS [Concomitant]
     Active Substance: HUMAN PLATELET, ALLOGENIC
     Indication: Myelodysplastic syndrome
     Dosage: UNK
     Route: 065
     Dates: start: 20211126, end: 20211126
  19. PLATELETS [Concomitant]
     Active Substance: HUMAN PLATELET, ALLOGENIC
     Dosage: UNK
     Route: 065
     Dates: start: 20211207, end: 20211207
  20. PLATELETS [Concomitant]
     Active Substance: HUMAN PLATELET, ALLOGENIC
     Dosage: UNK
     Route: 065
     Dates: start: 20210920, end: 20210920
  21. PLATELETS [Concomitant]
     Active Substance: HUMAN PLATELET, ALLOGENIC
     Dosage: UNK
     Route: 065
     Dates: start: 20211108, end: 20211108
  22. PLATELETS [Concomitant]
     Active Substance: HUMAN PLATELET, ALLOGENIC
     Dosage: UNK
     Route: 065
     Dates: start: 20211029, end: 20211029
  23. PLATELETS [Concomitant]
     Active Substance: HUMAN PLATELET, ALLOGENIC
     Dosage: UNK
     Route: 065
     Dates: start: 20211117, end: 20211117
  24. PLATELETS [Concomitant]
     Active Substance: HUMAN PLATELET, ALLOGENIC
     Dosage: UNK
     Route: 065
     Dates: start: 20211020, end: 20211020
  25. ALFUZOSIN [Concomitant]
     Active Substance: ALFUZOSIN
     Indication: Benign prostatic hyperplasia
     Dosage: 100 MILLIGRAM, QD
     Route: 048
     Dates: start: 20220109
  26. FUROSEMIDE [Concomitant]
     Active Substance: FUROSEMIDE
     Indication: Fluid retention
     Dosage: 60 MILLIGRAM
     Route: 048
     Dates: start: 20220107
  27. ALFUZOSIN [Concomitant]
     Active Substance: ALFUZOSIN
     Indication: Benign prostatic hyperplasia
     Dosage: 100 MILLIGRAM, QD
     Route: 048
     Dates: start: 20220109
  28. CILASTATIN SODIUM\IMIPENEM [Concomitant]
     Active Substance: CILASTATIN SODIUM\IMIPENEM
     Indication: Product used for unknown indication
     Dosage: UNK
     Route: 065

REACTIONS (2)
  - Lung disorder [Recovered/Resolved]
  - Pneumonia [Recovered/Resolved]

NARRATIVE: CASE EVENT DATE: 20211228
